FAERS Safety Report 4644832-3 (Version None)
Quarter: 2005Q2

REPORT INFORMATION
  Report Type: 
  Country: None (occurrence: None)
  Receive Date: 20050422
  Receipt Date: 20050411
  Transmission Date: 20051028
  Serious: No
  Sender: FDA-Public Use
  Company Number: 2005GB00708

PATIENT
  Sex: Female

DRUGS (4)
  1. ZOLADEX [Suspect]
     Indication: BREAST CANCER
     Dosage: 3.6 MG SQ
     Route: 058
     Dates: start: 20020101
  2. ARIMIDEX [Concomitant]
  3. AMINOPHYLLINE [Concomitant]
  4. LORATADINE [Concomitant]

REACTIONS (3)
  - FATIGUE [None]
  - MALAISE [None]
  - MOOD SWINGS [None]
